FAERS Safety Report 8805369 (Version 1)
Quarter: 2012Q4

REPORT INFORMATION
  Report Type: Spontaneous
  Country: US (occurrence: None)
  Receive Date: 20120918
  Receipt Date: 20120918
  Transmission Date: 20130627
  Serious: No
  Sender: FDA-Public Use
  Company Number: None

PATIENT
  Age: 61 Year
  Sex: Male
  Weight: 116.8 kg

DRUGS (1)
  1. ENOXAPARIN [Suspect]
     Dates: start: 20120713, end: 20120727

REACTIONS (3)
  - Abdominal distension [None]
  - Urticaria [None]
  - Erythema multiforme [None]
